FAERS Safety Report 19260189 (Version 2)
Quarter: 2021Q2

REPORT INFORMATION
  Report Type: Report from Study
  Country: US (occurrence: US)
  Receive Date: 20210514
  Receipt Date: 20210517
  Transmission Date: 20210717
  Serious: Yes (Other)
  Sender: FDA-Public Use
  Company Number: US-BIOGEN-2021BI01009326

PATIENT
  Sex: Male

DRUGS (2)
  1. TECFIDERA [Suspect]
     Active Substance: DIMETHYL FUMARATE
     Indication: MULTIPLE SCLEROSIS
     Route: 065
  2. VUMERITY [Suspect]
     Active Substance: DIROXIMEL FUMARATE
     Indication: MULTIPLE SCLEROSIS
     Route: 065
     Dates: start: 20210107

REACTIONS (6)
  - Multiple sclerosis [Unknown]
  - Blindness cortical [Not Recovered/Not Resolved]
  - Middle insomnia [Unknown]
  - Dementia [Unknown]
  - Memory impairment [Not Recovered/Not Resolved]
  - Visual impairment [Unknown]
